FAERS Safety Report 25812417 (Version 1)
Quarter: 2025Q3

REPORT INFORMATION
  Report Type: Spontaneous
  Country: US (occurrence: None)
  Receive Date: 20250917
  Receipt Date: 20250917
  Transmission Date: 20251020
  Serious: No
  Sender: FDA-CTU
  Company Number: None

PATIENT
  Age: 77 Year
  Sex: Female
  Weight: 94.5 kg

DRUGS (5)
  1. VALSARTAN [Suspect]
     Active Substance: VALSARTAN
     Indication: Hypertension
     Route: 048
     Dates: start: 20250916, end: 20250916
  2. LOSARTAN [Suspect]
     Active Substance: LOSARTAN
  3. Maloxicam [Concomitant]
  4. TYLENOL [Concomitant]
     Active Substance: ACETAMINOPHEN
  5. Vitamin D3 CoQ10 [Concomitant]

REACTIONS (5)
  - Throat irritation [None]
  - Influenza [None]
  - Facial pain [None]
  - Sinus congestion [None]
  - Sleep disorder [None]

NARRATIVE: CASE EVENT DATE: 20250916
